FAERS Safety Report 5449243-9 (Version None)
Quarter: 2007Q3

REPORT INFORMATION
  Report Type: 
  Country: None (occurrence: None)
  Receive Date: 20070911
  Receipt Date: 20070424
  Transmission Date: 20080115
  Serious: Yes (Other)
  Sender: FDA-Public Use
  Company Number: US-SHR-US-2006-032373

PATIENT
  Age: 33 Year
  Sex: Female

DRUGS (3)
  1. BETASERON [Suspect]
     Indication: MULTIPLE SCLEROSIS
     Dosage: 2 MIU, EVERY 2D
     Route: 058
     Dates: start: 20061011
  2. BETASERON [Suspect]
     Dosage: 8 MIU, EVERY 2D IN THE EVENING
     Route: 058
     Dates: end: 20070417
  3. UNSPECIFIED MEDICATION [Concomitant]
     Indication: PREMEDICATION
     Dosage: UNK, UNK
     Route: 065

REACTIONS (12)
  - ASTHENIA [None]
  - CELLULITIS [None]
  - INJECTION SITE ERYTHEMA [None]
  - INJECTION SITE INFLAMMATION [None]
  - INJECTION SITE PRURITUS [None]
  - INJECTION SITE RASH [None]
  - INJECTION SITE WARMTH [None]
  - NAUSEA [None]
  - PHYSICAL DISABILITY [None]
  - RHINORRHOEA [None]
  - SCAR [None]
  - SYSTEMIC LUPUS ERYTHEMATOSUS [None]
